FAERS Safety Report 6886247-3 (Version None)
Quarter: 2010Q3

REPORT INFORMATION
  Report Type: 
  Country: None (occurrence: None)
  Receive Date: 20100729
  Receipt Date: 20080604
  Transmission Date: 20110219
  Serious: No
  Sender: FDA-Public Use
  Company Number: US-PFIZER INC-2008039679

PATIENT
  Sex: Male
  Weight: 90.9 kg

DRUGS (5)
  1. CELEBREX [Suspect]
     Indication: ARTHRITIS
  2. MICARDIS [Interacting]
     Indication: BLOOD PRESSURE
     Route: 048
     Dates: start: 20060601
  3. TAMSULOSIN HYDROCHLORIDE [Concomitant]
  4. VYTORIN [Concomitant]
  5. AVODART [Concomitant]

REACTIONS (2)
  - BLOOD PRESSURE INADEQUATELY CONTROLLED [None]
  - DRUG INTERACTION [None]
